FAERS Safety Report 13135809 (Version 6)
Quarter: 2018Q1

REPORT INFORMATION
  Report Type: Report from Study
  Country: US (occurrence: US)
  Receive Date: 20170120
  Receipt Date: 20180319
  Transmission Date: 20180508
  Serious: Yes (Hospitalization, Other)
  Sender: FDA-Public Use
  Company Number: US-ACTELION-A-US2017-148685

PATIENT
  Age: 60 Year
  Sex: Female

DRUGS (13)
  1. LANTUS [Concomitant]
     Active Substance: INSULIN GLARGINE
  2. MYFORTIC [Concomitant]
     Active Substance: MYCOPHENOLATE SODIUM
  3. GABAPENTIN. [Concomitant]
     Active Substance: GABAPENTIN
  4. OPSUMIT [Suspect]
     Active Substance: MACITENTAN
     Indication: PULMONARY ARTERIAL HYPERTENSION
     Dosage: 10 MG, QD
     Route: 048
     Dates: start: 20150416
  5. HUMALOG [Concomitant]
     Active Substance: INSULIN LISPRO
  6. TACROLIMUS. [Concomitant]
     Active Substance: TACROLIMUS
  7. PREDNISONE. [Concomitant]
     Active Substance: PREDNISONE
  8. VALCYTE [Concomitant]
     Active Substance: VALGANCICLOVIR HYDROCHLORIDE
  9. PROAIR RESPICLICK [Concomitant]
     Active Substance: ALBUTEROL SULFATE
  10. NORVASC [Concomitant]
     Active Substance: AMLODIPINE BESYLATE
  11. ADVAIR HFA [Concomitant]
     Active Substance: FLUTICASONE PROPIONATE\SALMETEROL XINAFOATE
  12. ZANTAC [Concomitant]
     Active Substance: RANITIDINE HYDROCHLORIDE
  13. ACETAMINOPHEN. [Concomitant]
     Active Substance: ACETAMINOPHEN

REACTIONS (10)
  - Toe amputation [Recovered/Resolved]
  - Foot fracture [Unknown]
  - Neuropathic arthropathy [Unknown]
  - Vasculitis [Recovering/Resolving]
  - Osteomyelitis [Not Recovered/Not Resolved]
  - Purpura [Recovering/Resolving]
  - Renal transplant [Recovered/Resolved]
  - Blood creatinine increased [Recovered/Resolved]
  - Peripheral swelling [Not Recovered/Not Resolved]
  - Cellulitis [Not Recovered/Not Resolved]

NARRATIVE: CASE EVENT DATE: 2016
